FAERS Safety Report 9476530 (Version 1)
Quarter: 2013Q3

REPORT INFORMATION
  Report Type: Spontaneous
  Country: US (occurrence: None)
  Receive Date: 20130823
  Receipt Date: 20130823
  Transmission Date: 20140515
  Serious: Yes (Other)
  Sender: FDA-Public Use
  Company Number: None

PATIENT
  Age: 46 Year
  Sex: Male
  Weight: 122.47 kg

DRUGS (1)
  1. PENTAZOCINE-NALOXONE [Suspect]
     Indication: BACK PAIN
     Dates: start: 20130117

REACTIONS (3)
  - VIIth nerve paralysis [None]
  - Middle insomnia [None]
  - Dysphagia [None]
